FAERS Safety Report 21633973 (Version 1)
Quarter: 2022Q4

REPORT INFORMATION
  Report Type: Other
  Country: US (occurrence: None)
  Receive Date: 20221123
  Receipt Date: 20221123
  Transmission Date: 20230113
  Serious: No
  Sender: FDA-Public Use
  Company Number: US-ROCHE-3223248

PATIENT
  Age: 35 Year
  Sex: Female

DRUGS (1)
  1. OCREVUS [Suspect]
     Active Substance: OCRELIZUMAB
     Indication: Multiple sclerosis
     Dosage: 600 MG EVERY 6 MONTH, DATE OF TREATMENT: 16-MAR-2021, 14-APR-2022, 13-OCT-2021, 30-MAR-2021, 16-MAR-
     Route: 042
     Dates: start: 20210316, end: 20220414

REACTIONS (2)
  - Nasopharyngitis [Recovered/Resolved]
  - Influenza [Recovered/Resolved]
